FAERS Safety Report 6532808-0 (Version None)
Quarter: 2010Q1

REPORT INFORMATION
  Report Type: 
  Country: None (occurrence: None)
  Receive Date: 20100111
  Receipt Date: 20091222
  Transmission Date: 20100710
  Serious: Yes (Hospitalization)
  Sender: FDA-Public Use
  Company Number: IL-BAYER-200942794GPV

PATIENT
  Age: 88 Year
  Sex: Male

DRUGS (16)
  1. NEXAVAR [Suspect]
     Indication: HEPATIC NEOPLASM MALIGNANT
     Dosage: TOTAL DAILY DOSE: 800 MG
     Route: 048
     Dates: start: 20091115, end: 20091208
  2. CLONEX [Concomitant]
  3. PERCOCET [Concomitant]
  4. CALMANERVIN [Concomitant]
  5. MICROPIRIN [Concomitant]
     Route: 048
  6. NORMALOL [Concomitant]
     Route: 048
  7. NORVASC [Concomitant]
     Route: 048
  8. NORMOPRESAN [Concomitant]
     Route: 048
  9. OMEPRADEX [Concomitant]
     Route: 048
  10. XATRAL [Concomitant]
     Route: 048
  11. BONDORMIN [Concomitant]
     Route: 048
  12. MODAL [Concomitant]
     Route: 048
  13. EVITOL [Concomitant]
     Route: 048
  14. TRIBEMIN [Concomitant]
     Route: 048
  15. AVILAC [Concomitant]
     Dosage: 30 CC
     Route: 048
  16. GLUCOPHAGE [Concomitant]
     Route: 048

REACTIONS (2)
  - ASTHENIA [None]
  - HEPATIC ENCEPHALOPATHY [None]
